FAERS Safety Report 17075959 (Version 10)
Quarter: 2021Q2

REPORT INFORMATION
  Report Type: Spontaneous
  Country: US (occurrence: US)
  Receive Date: 20191126
  Receipt Date: 20210506
  Transmission Date: 20210716
  Serious: Yes (Other)
  Sender: FDA-Public Use
  Company Number: US-GILEAD-2019-0439481

PATIENT
  Age: 59 Year
  Sex: Male
  Weight: 64.85 kg

DRUGS (38)
  1. TRUVADA [Suspect]
     Active Substance: EMTRICITABINE\TENOFOVIR DISOPROXIL FUMARATE
     Indication: HIV INFECTION
     Dosage: UNK
     Route: 048
     Dates: start: 200709, end: 20111028
  2. TRUVADA [Suspect]
     Active Substance: EMTRICITABINE\TENOFOVIR DISOPROXIL FUMARATE
     Dosage: UNK
     Route: 065
     Dates: start: 200709, end: 20101130
  3. TRUVADA [Suspect]
     Active Substance: EMTRICITABINE\TENOFOVIR DISOPROXIL FUMARATE
     Dosage: UNK
     Route: 065
     Dates: start: 20110914, end: 20110914
  4. ATRIPLA [Suspect]
     Active Substance: EFAVIRENZ\EMTRICITABINE\TENOFOVIR DISOPROXIL FUMARATE
     Indication: HIV INFECTION
     Dosage: UNK
     Route: 048
     Dates: start: 20111011, end: 20160629
  5. EPIVIR [Concomitant]
     Active Substance: LAMIVUDINE
     Indication: HIV INFECTION
     Dosage: UNK
     Dates: start: 20160604, end: 20161217
  6. COMBIVIR [Concomitant]
     Active Substance: LAMIVUDINE\ZIDOVUDINE
     Indication: HIV INFECTION
     Dosage: UNK
     Dates: start: 20160604, end: 20161217
  7. ZERIT [Concomitant]
     Active Substance: STAVUDINE
  8. CALCIUM ACETATE. [Concomitant]
     Active Substance: CALCIUM ACETATE
     Dosage: UNK
     Dates: start: 201701, end: 201703
  9. SODIUM BICARBONATE. [Concomitant]
     Active Substance: SODIUM BICARBONATE
  10. ZANTAC [Concomitant]
     Active Substance: RANITIDINE HYDROCHLORIDE
     Dosage: UNK
     Dates: start: 20180226, end: 202004
  11. KALETRA [Concomitant]
     Active Substance: LOPINAVIR\RITONAVIR
     Indication: HIV INFECTION
     Dosage: UNK
     Dates: start: 20110819, end: 20110928
  12. ATRIPLA [Suspect]
     Active Substance: EFAVIRENZ\EMTRICITABINE\TENOFOVIR DISOPROXIL FUMARATE
     Dosage: UNK
     Route: 065
     Dates: start: 20121114, end: 20160602
  13. WARFARIN [Concomitant]
     Active Substance: WARFARIN
     Dosage: UNK
     Dates: start: 20170413, end: 201711
  14. NORVIR [Concomitant]
     Active Substance: RITONAVIR
     Indication: HIV INFECTION
     Dosage: UNK
     Dates: start: 20170415, end: 20180317
  15. VELPHORO [Concomitant]
     Active Substance: SUCROFERRIC OXYHYDROXIDE
     Dosage: UNK
     Dates: start: 20170726, end: 20171021
  16. LAMIVUDINE. [Concomitant]
     Active Substance: LAMIVUDINE
     Indication: HIV INFECTION
     Dosage: UNK
     Dates: start: 20160604, end: 20161217
  17. ATRIPLA [Suspect]
     Active Substance: EFAVIRENZ\EMTRICITABINE\TENOFOVIR DISOPROXIL FUMARATE
     Dosage: UNK
     Route: 048
     Dates: start: 20111011, end: 20160530
  18. ATRIPLA [Suspect]
     Active Substance: EFAVIRENZ\EMTRICITABINE\TENOFOVIR DISOPROXIL FUMARATE
     Dosage: UNK
     Route: 065
     Dates: start: 20111011, end: 20121011
  19. ASPIRIN [ACETYLSALICYLIC ACID] [Concomitant]
     Active Substance: ASPIRIN
     Dosage: UNK
     Dates: start: 20190118
  20. SUSTIVA [Concomitant]
     Active Substance: EFAVIRENZ
     Indication: HIV INFECTION
     Dosage: UNK
     Dates: start: 20160629, end: 20170119
  21. TRUVADA [Suspect]
     Active Substance: EMTRICITABINE\TENOFOVIR DISOPROXIL FUMARATE
     Dosage: UNK
     Route: 065
     Dates: start: 20110928, end: 20110928
  22. PANTOPRAZOLE [Concomitant]
     Active Substance: PANTOPRAZOLE
     Dosage: UNK
     Dates: start: 20171016, end: 202009
  23. TIVICAY [Concomitant]
     Active Substance: DOLUTEGRAVIR SODIUM
     Indication: HIV INFECTION
     Dosage: UNK
     Dates: start: 20170415
  24. COLCHICINE. [Concomitant]
     Active Substance: COLCHICINE
     Dosage: UNK
     Dates: start: 20200713
  25. ACETAMINOPHEN. [Concomitant]
     Active Substance: ACETAMINOPHEN
     Dosage: UNK
     Dates: start: 20170418
  26. ZIAGEN [Concomitant]
     Active Substance: ABACAVIR SULFATE
     Indication: HIV INFECTION
     Dosage: UNK
     Dates: start: 20160629, end: 20161217
  27. TRUVADA [Suspect]
     Active Substance: EMTRICITABINE\TENOFOVIR DISOPROXIL FUMARATE
     Dosage: UNK
     Route: 065
     Dates: start: 20110107, end: 20110813
  28. TRUVADA [Suspect]
     Active Substance: EMTRICITABINE\TENOFOVIR DISOPROXIL FUMARATE
     Dosage: UNK
     Route: 048
     Dates: start: 20080902, end: 20101130
  29. PROCRIT [Concomitant]
     Active Substance: ERYTHROPOIETIN
     Dosage: UNK
     Dates: start: 20160109, end: 20170901
  30. HEPARIN [Concomitant]
     Active Substance: HEPARIN SODIUM
     Dosage: UNK
     Dates: start: 20170314
  31. AURYXIA [Concomitant]
     Active Substance: TETRAFERRIC TRICITRATE DECAHYDRATE
     Dosage: UNK
     Dates: start: 20171128
  32. TRUVADA [Suspect]
     Active Substance: EMTRICITABINE\TENOFOVIR DISOPROXIL FUMARATE
     Dosage: UNK
     Route: 048
     Dates: start: 20100103, end: 20111010
  33. FAMOTIDINE. [Concomitant]
     Active Substance: FAMOTIDINE
     Dosage: UNK
     Dates: start: 20200504
  34. PREZISTA [Concomitant]
     Active Substance: DARUNAVIR ETHANOLATE
     Indication: HIV INFECTION
     Dosage: UNK
     Dates: start: 20170417, end: 20200804
  35. RANITIDINE. [Concomitant]
     Active Substance: RANITIDINE
  36. PIFELTRO [Concomitant]
     Active Substance: DORAVIRINE
  37. SELZENTRY [Concomitant]
     Active Substance: MARAVIROC
  38. SEVELAMER [Concomitant]
     Active Substance: SEVELAMER
     Dosage: UNK
     Dates: start: 20180912

REACTIONS (22)
  - End stage renal disease [Not Recovered/Not Resolved]
  - Foot fracture [Recovered/Resolved]
  - Anxiety [Not Recovered/Not Resolved]
  - Chest injury [Unknown]
  - Chronic kidney disease [Not Recovered/Not Resolved]
  - Renal tubular disorder [Not Recovered/Not Resolved]
  - Acute kidney injury [Not Recovered/Not Resolved]
  - Renal failure [Unknown]
  - Back injury [Unknown]
  - Joint injury [Unknown]
  - Tooth loss [Recovered/Resolved]
  - Limb injury [Unknown]
  - Renal tubular necrosis [Not Recovered/Not Resolved]
  - Osteoporosis [Not Recovered/Not Resolved]
  - Emotional distress [Unknown]
  - Osteoarthritis [Unknown]
  - Depression [Not Recovered/Not Resolved]
  - Economic problem [Unknown]
  - Anhedonia [Unknown]
  - Acute kidney injury [Recovered/Resolved]
  - Pancreatitis [Unknown]
  - Pain [Unknown]

NARRATIVE: CASE EVENT DATE: 20160530
